FAERS Safety Report 7396076-2 (Version None)
Quarter: 2011Q2

REPORT INFORMATION
  Report Type: 
  Country: None (occurrence: None)
  Receive Date: 20110406
  Receipt Date: 20110324
  Transmission Date: 20111010
  Serious: Yes (Hospitalization, Other)
  Sender: FDA-Public Use
  Company Number: US-ELI_LILLY_AND_COMPANY-US201103007622

PATIENT
  Age: 60 Year
  Sex: Female

DRUGS (2)
  1. XANAX [Concomitant]
  2. CYMBALTA [Suspect]
     Indication: DEPRESSION
     Dosage: UNK, UNKNOWN
     Dates: start: 20060101

REACTIONS (13)
  - SPINAL FRACTURE [None]
  - GRAND MAL CONVULSION [None]
  - MUSCULOSKELETAL STIFFNESS [None]
  - LIVER DISORDER [None]
  - LOSS OF CONSCIOUSNESS [None]
  - HYPOAESTHESIA [None]
  - FALL [None]
  - WITHDRAWAL SYNDROME [None]
  - MEMORY IMPAIRMENT [None]
  - DYSKINESIA [None]
  - CONFUSIONAL STATE [None]
  - MULTIPLE FRACTURES [None]
  - PARALYSIS [None]
